FAERS Safety Report 4683513-7 (Version None)
Quarter: 2005Q2

REPORT INFORMATION
  Report Type: 
  Country: None (occurrence: None)
  Receive Date: 20050602
  Receipt Date: 20050321
  Transmission Date: 20051028
  Serious: No
  Sender: FDA-Public Use
  Company Number: 200510583BWH

PATIENT
  Age: 50 Year
  Sex: Male

DRUGS (2)
  1. LEVITRA [Suspect]
     Indication: ERECTILE DYSFUNCTION
  2. TESTOSTRONE ENANTHATE (TESTOSTERONE ENANTATE) [Suspect]
     Indication: ERECTILE DYSFUNCTION
     Dosage: 1.25 ML, Q1MON, INTRAMUSCULAR
     Route: 030
     Dates: start: 20040201, end: 20040223

REACTIONS (1)
  - ERECTILE DYSFUNCTION [None]
